FAERS Safety Report 6955140-X (Version None)
Quarter: 2010Q3

REPORT INFORMATION
  Report Type: 
  Country: None (occurrence: None)
  Receive Date: 20100830
  Receipt Date: 20100823
  Transmission Date: 20110219
  Serious: Yes (Hospitalization, Other)
  Sender: FDA-Public Use
  Company Number: CA-TEVA-246007USA

PATIENT
  Sex: Female

DRUGS (2)
  1. GLIBENCLAMIDE 1.25 MG, 2.5 MG + 5 MG TABLETS [Suspect]
     Indication: PRODUCT USED FOR UNKNOWN INDICATION
     Route: 048
     Dates: start: 20100523
  2. METFORMIN [Suspect]
     Indication: DIABETES MELLITUS
     Dosage: 1 HALF TABLET EVERY 8 HOURS
     Route: 048
     Dates: start: 20100523

REACTIONS (4)
  - NEPHROLITHIASIS [None]
  - RENAL PAIN [None]
  - ROAD TRAFFIC ACCIDENT [None]
  - TINNITUS [None]
